FAERS Safety Report 10064853 (Version 1)
Quarter: 2014Q1

REPORT INFORMATION
  Report Type: Spontaneous
  Country: US (occurrence: None)
  Receive Date: 20140328
  Receipt Date: 20140328
  Transmission Date: 20141002
  Serious: No
  Sender: FDA-Public Use
  Company Number: 1000054356

PATIENT
  Age: 54 Year
  Sex: Male

DRUGS (5)
  1. LINZESS (LINACLOTIDE) (290 MICROGRAM, CAPSULES) [Suspect]
     Indication: IRRITABLE BOWEL SYNDROME
     Dosage: QOD AS NEEDED
     Route: 048
     Dates: start: 201308
  2. OXYCODONE/ACETAMINOPHEN [Concomitant]
  3. ASPIRIN (ACETYLSALICYLIC ACID) [Concomitant]
  4. LISINOPRIL [Concomitant]
  5. METOPROLOL [Concomitant]

REACTIONS (1)
  - Drug ineffective [None]
